FAERS Safety Report 5673613-7 (Version None)
Quarter: 2008Q1

REPORT INFORMATION
  Report Type: 
  Country: None (occurrence: None)
  Receive Date: 20080319
  Receipt Date: 20080310
  Transmission Date: 20080703
  Serious: Yes (Other)
  Sender: FDA-Public Use
  Company Number: US-PFIZER INC-2008022155

PATIENT
  Sex: Female
  Weight: 63.636 kg

DRUGS (9)
  1. QUINAPRIL HCL [Suspect]
     Indication: BLOOD PRESSURE
     Dates: start: 20080206, end: 20080301
  2. TRICOR [Concomitant]
  3. TOPROL-XL [Concomitant]
  4. CRESTOR [Concomitant]
  5. ASACOL [Concomitant]
  6. RANITIDINE [Concomitant]
  7. ASPIRIN [Concomitant]
  8. DARIFENACIN [Concomitant]
  9. VITAMINS [Concomitant]

REACTIONS (2)
  - CROHN'S DISEASE [None]
  - LACRIMATION INCREASED [None]
